FAERS Safety Report 9000084 (Version 2)
Quarter: 2013Q4

REPORT INFORMATION
  Report Type: Spontaneous
  Country: MA (occurrence: MA)
  Receive Date: 20130102
  Receipt Date: 20131231
  Transmission Date: 20140711
  Serious: Yes (Disabling)
  Sender: FDA-Public Use
  Company Number: MA-BRISTOL-MYERS SQUIBB COMPANY-17250135

PATIENT
  Age: 56 Year
  Sex: Female

DRUGS (1)
  1. GLUCOPHAGE [Suspect]
     Route: 048
     Dates: start: 20121205, end: 20121212

REACTIONS (1)
  - Skin lesion [Not Recovered/Not Resolved]
